FAERS Safety Report 15418681 (Version 1)
Quarter: 2018Q3

REPORT INFORMATION
  Report Type: Spontaneous
  Country: US (occurrence: US)
  Receive Date: 20180924
  Receipt Date: 20180924
  Transmission Date: 20181010
  Serious: No
  Sender: FDA-Public Use
  Company Number: US-SA-2018SA262884

PATIENT
  Age: 46 Year
  Sex: Female
  Weight: 99 kg

DRUGS (17)
  1. VITAMIN D2 [Concomitant]
     Active Substance: ERGOCALCIFEROL
     Dosage: UNK UNK, QOW 1 CAP BY MOUTH
     Route: 048
     Dates: start: 20170613
  2. AMOXICILLIN. [Concomitant]
     Active Substance: AMOXICILLIN
     Dosage: UNK, TID
     Route: 048
     Dates: start: 20180911
  3. PANTOPRAZOLE [Concomitant]
     Active Substance: PANTOPRAZOLE
     Dosage: UNK UNK, QD 1 TAB
     Route: 048
     Dates: start: 20170613
  4. PROAIR [SALBUTAMOL SULFATE] [Concomitant]
     Dosage: 1 PUFF AS NEEDED
     Route: 055
     Dates: start: 20170613
  5. BENAZEPRIL [Concomitant]
     Active Substance: BENAZEPRIL HYDROCHLORIDE
     Dosage: UNK UNK, QD 1 TAB
     Dates: start: 20170613
  6. FABRAZYME [Suspect]
     Active Substance: AGALSIDASE BETA
     Indication: FABRY^S DISEASE
     Dosage: 95 MG, QOW
     Route: 041
  7. SODIUM CHLORIDE. [Concomitant]
     Active Substance: SODIUM CHLORIDE
     Indication: FLUSHING
     Dosage: 0.9 % AS DIRECTED
     Route: 041
     Dates: start: 20180510
  8. WARFARIN [Concomitant]
     Active Substance: WARFARIN
     Dosage: 1 TAB BY MOUTH UNK UNK, QD
     Route: 048
     Dates: start: 20170613
  9. GABAPENTIN. [Concomitant]
     Active Substance: GABAPENTIN
     Dosage: 1 UNK, QD 1 TAB
     Route: 048
     Dates: start: 20180613
  10. SYMBICORT [Concomitant]
     Active Substance: BUDESONIDE\FORMOTEROL FUMARATE DIHYDRATE
     Dosage: UNK UNK, QD 2 PUFF
     Route: 055
     Dates: start: 20180613
  11. FERROUS SULPHATE [FERROUS SULFATE] [Concomitant]
     Dosage: UNK UNK, QD 1 TAB
     Route: 048
     Dates: start: 20180626
  12. HEPARIN [Concomitant]
     Active Substance: HEPARIN SODIUM
     Indication: FLUSHING
     Dosage: 100 UN/ML
     Route: 041
     Dates: start: 20180510
  13. STERILE WATER [Concomitant]
     Active Substance: WATER
     Dosage: UNK 1 DOSE
     Route: 041
     Dates: start: 20180510
  14. SINGULAIR [Concomitant]
     Active Substance: MONTELUKAST SODIUM
     Dosage: UNK UNK, QD 1 TAB
     Route: 048
     Dates: start: 20180613
  15. PREDNISONE. [Concomitant]
     Active Substance: PREDNISONE
     Dosage: UNK UNK, TID 1 TAB
     Route: 048
     Dates: start: 20180911
  16. NORMAL SALINE [Concomitant]
     Active Substance: SODIUM CHLORIDE
     Dosage: 0.9 % AS NEEDED
     Route: 041
     Dates: start: 20180510
  17. EPINEPHRINE. [Concomitant]
     Active Substance: EPINEPHRINE
     Indication: ANAPHYLACTIC REACTION
     Dosage: 0.3 MG
     Route: 030
     Dates: start: 20180510

REACTIONS (1)
  - Sinusitis [Unknown]
